FAERS Safety Report 4979011-3 (Version None)
Quarter: 2006Q2

REPORT INFORMATION
  Report Type: 
  Country: None (occurrence: None)
  Receive Date: 20060417
  Receipt Date: 20060404
  Transmission Date: 20061013
  Serious: Yes (Life-Threatening, Hospitalization)
  Sender: FDA-Public Use
  Company Number: 02100-JPN-06-0111

PATIENT
  Age: 53 Year
  Sex: Male

DRUGS (5)
  1. CILOSTAZOL [Suspect]
     Indication: EMBOLISM
     Dosage: 100 MG ORAL
     Route: 048
     Dates: start: 20060207, end: 20060221
  2. CILOSTAZOL [Suspect]
     Indication: THROMBOSIS
     Dosage: 100 MG ORAL
     Route: 048
     Dates: start: 20060207, end: 20060221
  3. FUROSEMIDE [Concomitant]
  4. .. [Concomitant]
  5. BUMETANIDE [Concomitant]

REACTIONS (4)
  - FLUID RETENTION [None]
  - GENERALISED OEDEMA [None]
  - SYNCOPE [None]
  - WEIGHT INCREASED [None]
